FAERS Safety Report 5734857-9 (Version None)
Quarter: 2008Q2

REPORT INFORMATION
  Report Type: 
  Country: None (occurrence: None)
  Receive Date: 20080512
  Receipt Date: 20080506
  Transmission Date: 20081010
  Serious: No
  Sender: FDA-Public Use
  Company Number: A0717348A

PATIENT
  Age: 61 Year
  Sex: Male
  Weight: 88.6 kg

DRUGS (4)
  1. FLONASE [Suspect]
     Dosage: 2PUFF PER DAY
     Route: 045
     Dates: start: 20080216, end: 20080314
  2. SUDAFED 12 HOUR [Concomitant]
  3. CODEINE + GUAIFENESIN [Concomitant]
  4. ROBITUSSIN [Concomitant]

REACTIONS (5)
  - BODY TEMPERATURE INCREASED [None]
  - DELIRIUM [None]
  - EPISTAXIS [None]
  - HAEMOPTYSIS [None]
  - INFLUENZA [None]
